FAERS Safety Report 18089352 (Version 2)
Quarter: 2020Q3

REPORT INFORMATION
  Report Type: Spontaneous
  Country: IT (occurrence: IT)
  Receive Date: 20200730
  Receipt Date: 20200918
  Transmission Date: 20201103
  Serious: Yes (Death, Other)
  Sender: FDA-Public Use
  Company Number: IT-SUN PHARMACEUTICAL INDUSTRIES LTD-2020R1-255048

PATIENT
  Age: 64 Year
  Sex: Female

DRUGS (12)
  1. MEFLOQUINE [Suspect]
     Active Substance: MEFLOQUINE
     Indication: PROGRESSIVE MULTIFOCAL LEUKOENCEPHALOPATHY
     Dosage: UNK
     Route: 065
     Dates: start: 201707
  2. CYTARABINE. [Suspect]
     Active Substance: CYTARABINE
     Indication: IMMUNOSUPPRESSANT DRUG THERAPY
     Dosage: ()
     Route: 065
  3. ETOPOSIDE. [Suspect]
     Active Substance: ETOPOSIDE
     Indication: IMMUNOSUPPRESSANT DRUG THERAPY
     Dosage: ()
     Route: 065
  4. MIRTAZAPINE. [Suspect]
     Active Substance: MIRTAZAPINE
     Indication: PROGRESSIVE MULTIFOCAL LEUKOENCEPHALOPATHY
     Dosage: UNK
     Route: 065
     Dates: start: 201707
  5. FLUDARABINE [Suspect]
     Active Substance: FLUDARABINE PHOSPHATE
     Indication: CHRONIC LYMPHOCYTIC LEUKAEMIA
     Route: 065
  6. CARMUSTINE. [Suspect]
     Active Substance: CARMUSTINE
     Indication: IMMUNOSUPPRESSANT DRUG THERAPY
     Dosage: ()
     Route: 065
  7. BENDAMUSTINE [Suspect]
     Active Substance: BENDAMUSTINE
     Indication: CHRONIC LYMPHOCYTIC LEUKAEMIA
     Route: 065
  8. RITUXIMAB. [Suspect]
     Active Substance: RITUXIMAB
     Indication: CHRONIC LYMPHOCYTIC LEUKAEMIA
     Dosage: RECEIVED 5 COURSES OUT OF 8
     Route: 065
     Dates: start: 201510, end: 201512
  9. MELPHALAN. [Suspect]
     Active Substance: MELPHALAN
     Indication: IMMUNOSUPPRESSANT DRUG THERAPY
     Dosage: ()
     Route: 065
  10. IDELALISIB [Suspect]
     Active Substance: IDELALISIB
     Indication: CHRONIC LYMPHOCYTIC LEUKAEMIA
     Dosage: 300 MILLIGRAM DAILY; AS MONOTHERAPY
     Route: 048
     Dates: start: 201510
  11. OFATUMUMAB [Suspect]
     Active Substance: OFATUMUMAB
     Indication: CHRONIC LYMPHOCYTIC LEUKAEMIA
     Route: 065
  12. CYCLOPHOSPHAMIDE. [Suspect]
     Active Substance: CYCLOPHOSPHAMIDE
     Indication: CHRONIC LYMPHOCYTIC LEUKAEMIA
     Route: 065

REACTIONS (11)
  - Progressive multifocal leukoencephalopathy [Fatal]
  - Colitis [Recovered/Resolved]
  - Rash [Unknown]
  - Ataxia [Not Recovered/Not Resolved]
  - Immune reconstitution inflammatory syndrome [Unknown]
  - Condition aggravated [Unknown]
  - Anosognosia [Unknown]
  - Status epilepticus [Fatal]
  - Muscular weakness [Unknown]
  - Status epilepticus [Not Recovered/Not Resolved]
  - Hemianopia [Not Recovered/Not Resolved]
